FAERS Safety Report 24327513 (Version 1)
Quarter: 2024Q3

REPORT INFORMATION
  Report Type: Spontaneous
  Country: US (occurrence: US)
  Receive Date: 20240917
  Receipt Date: 20240917
  Transmission Date: 20241016
  Serious: Yes (Hospitalization)
  Sender: MYLAN
  Company Number: US-MYLANLABS-2024M1083622

PATIENT
  Age: 16 Year
  Sex: Male

DRUGS (5)
  1. SULFAMETHOXAZOLE\TRIMETHOPRIM [Suspect]
     Active Substance: SULFAMETHOXAZOLE\TRIMETHOPRIM
     Indication: Staphylococcal bacteraemia
     Dosage: UNK, TID {TRIMETHOPRIM 16MG/ML AND SULFAMETHOXAZOLE 80MG/ML 3 TIMES DAILY}
     Route: 042
  2. IBUPROFEN [Suspect]
     Active Substance: IBUPROFEN
     Indication: Groin pain
     Dosage: UNK
     Route: 065
  3. IBUPROFEN [Suspect]
     Active Substance: IBUPROFEN
     Indication: Pyrexia
  4. IBUPROFEN [Suspect]
     Active Substance: IBUPROFEN
     Indication: Arthralgia
  5. CEFAZOLIN [Suspect]
     Active Substance: CEFAZOLIN
     Indication: Staphylococcal infection
     Dosage: 2 GRAM, TID
     Route: 042

REACTIONS (1)
  - Drug ineffective [Unknown]
